FAERS Safety Report 17551524 (Version 4)
Quarter: 2020Q2

REPORT INFORMATION
  Report Type: Spontaneous
  Country: US (occurrence: US)
  Receive Date: 20200317
  Receipt Date: 20200402
  Transmission Date: 20200713
  Serious: No
  Sender: FDA-Public Use
  Company Number: US-SA-2020SA061074

PATIENT
  Age: 50 Year
  Sex: Male

DRUGS (2)
  1. DUPIXENT [Suspect]
     Active Substance: DUPILUMAB
     Indication: ECZEMA
  2. DUPIXENT [Suspect]
     Active Substance: DUPILUMAB
     Indication: DERMATITIS ATOPIC
     Dosage: 300 MG, QOW
     Route: 058
     Dates: start: 20200225

REACTIONS (21)
  - Dry throat [Recovering/Resolving]
  - Myalgia [Recovering/Resolving]
  - Pain in extremity [Recovering/Resolving]
  - Ear pain [Recovering/Resolving]
  - Rash papular [Unknown]
  - Pruritus [Unknown]
  - Dry mouth [Recovering/Resolving]
  - Injection site erythema [Unknown]
  - Anxiety [Recovering/Resolving]
  - Oral pain [Recovering/Resolving]
  - Insomnia [Recovering/Resolving]
  - Rash erythematous [Unknown]
  - Peripheral swelling [Recovering/Resolving]
  - Eczema [Unknown]
  - Injection site bruising [Unknown]
  - Respiratory rate increased [Recovering/Resolving]
  - Feeling hot [Unknown]
  - Injection site discomfort [Recovering/Resolving]
  - Oropharyngeal pain [Recovering/Resolving]
  - Fatigue [Recovering/Resolving]
  - Erythema [Unknown]

NARRATIVE: CASE EVENT DATE: 20200312
